FAERS Safety Report 21449292 (Version 1)
Quarter: 2022Q4

REPORT INFORMATION
  Report Type: Spontaneous
  Country: IN (occurrence: IN)
  Receive Date: 20221013
  Receipt Date: 20221013
  Transmission Date: 20230112
  Serious: Yes (Life-Threatening, Hospitalization)
  Sender: FDA-Public Use
  Company Number: IN-SUN PHARMACEUTICAL INDUSTRIES LTD-2022R1-358461

PATIENT
  Age: 22 Year
  Sex: Female

DRUGS (3)
  1. ACECLOFENAC [Suspect]
     Active Substance: ACECLOFENAC
     Indication: Toothache
     Dosage: 100 MG
     Route: 065
  2. ACETAMINOPHEN [Suspect]
     Active Substance: ACETAMINOPHEN
     Indication: Toothache
     Dosage: 500 MG
     Route: 065
  3. NIMESULIDE [Suspect]
     Active Substance: NIMESULIDE
     Indication: Toothache
     Dosage: 100 MG
     Route: 065

REACTIONS (1)
  - Drug eruption [Recovered/Resolved]
